FAERS Safety Report 13289190 (Version 2)
Quarter: 2017Q2

REPORT INFORMATION
  Report Type: Report from Study
  Country: FR (occurrence: FR)
  Receive Date: 20170302
  Receipt Date: 20170406
  Transmission Date: 20170830
  Serious: Yes (Hospitalization, Disabling, Other)
  Sender: FDA-Public Use
  Company Number: FR-ASTELLAS-2015US034326

PATIENT
  Age: 67 Year
  Sex: Male

DRUGS (14)
  1. TACROLIMUS. [Suspect]
     Active Substance: TACROLIMUS
     Route: 065
     Dates: start: 20150928
  2. EUPANTOL [Concomitant]
     Active Substance: PANTOPRAZOLE SODIUM
     Indication: PROPHYLAXIS
     Dosage: 20 UNK, ONCE DAILY
     Route: 048
     Dates: start: 20140523, end: 20140919
  3. TACROLIMUS. [Suspect]
     Active Substance: TACROLIMUS
     Route: 065
     Dates: start: 20160116
  4. MEDROL [Concomitant]
     Active Substance: METHYLPREDNISOLONE
     Indication: PROPHYLAXIS AGAINST TRANSPLANT REJECTION
     Dosage: 4 UNK, ONCE DAILY
     Route: 048
     Dates: start: 20140523, end: 20141029
  5. TACROLIMUS. [Suspect]
     Active Substance: TACROLIMUS
     Indication: PROPHYLAXIS AGAINST TRANSPLANT REJECTION
     Route: 048
     Dates: start: 20140523
  6. CELLCEPT [Concomitant]
     Active Substance: MYCOPHENOLATE MOFETIL\MYCOPHENOLATE MOFETIL HYDROCHLORIDE
     Indication: PROPHYLAXIS AGAINST TRANSPLANT REJECTION
     Dosage: 1000 UNK, TWICE DAILY
     Route: 048
     Dates: start: 20140523, end: 20141022
  7. BACTRIM [Concomitant]
     Active Substance: SULFAMETHOXAZOLE\TRIMETHOPRIM
     Indication: PROPHYLAXIS
     Dosage: 5 UNK, ONCE DAILY
     Route: 048
     Dates: start: 20140523, end: 20141021
  8. TACROLIMUS. [Suspect]
     Active Substance: TACROLIMUS
     Route: 065
     Dates: start: 20150710
  9. LEVOTHYROX [Concomitant]
     Active Substance: LEVOTHYROXINE
     Indication: HYPOTHYROIDISM
     Dosage: 75 UNK, ONCE DAILY
     Route: 048
     Dates: start: 20040615
  10. RANITIDINE. [Concomitant]
     Active Substance: RANITIDINE
     Indication: PROPHYLAXIS
     Dosage: 150 UNK, ONCE DAILY
     Route: 048
     Dates: start: 20140523, end: 20150123
  11. ROVALCYTE [Concomitant]
     Active Substance: VALGANCICLOVIR HYDROCHLORIDE
     Indication: PROPHYLAXIS
     Dosage: 900, ONCE DAILY
     Route: 048
     Dates: start: 20140523, end: 20141024
  12. TACROLIMUS. [Suspect]
     Active Substance: TACROLIMUS
     Indication: PROPHYLAXIS AGAINST TRANSPLANT REJECTION
     Route: 065
     Dates: start: 20150212
  13. TACROLIMUS. [Suspect]
     Active Substance: TACROLIMUS
     Route: 065
     Dates: start: 20150805
  14. AMOXICILLINE                       /00249602/ [Concomitant]
     Active Substance: AMOXICILLIN
     Indication: PROPHYLAXIS
     Dosage: 1000 UNK, THRICE DAILY
     Route: 042
     Dates: start: 20140917, end: 20141008

REACTIONS (16)
  - Anastomotic stenosis [Unknown]
  - Hepatic artery stenosis [Recovering/Resolving]
  - Cholestasis [Recovered/Resolved with Sequelae]
  - Pulmonary infarction [Unknown]
  - Cholangitis [Unknown]
  - Transplant rejection [Unknown]
  - Phlebitis [Recovered/Resolved]
  - Transplant rejection [Recovering/Resolving]
  - Pruritus [Recovering/Resolving]
  - Hyperthermia [Recovered/Resolved]
  - Hypertension [Unknown]
  - Pulmonary embolism [Recovering/Resolving]
  - Intestinal anastomosis [Recovered/Resolved]
  - Abdominal pain upper [Unknown]
  - Liver transplant rejection [Recovered/Resolved]
  - Pleural effusion [Recovering/Resolving]

NARRATIVE: CASE EVENT DATE: 20140918
